FAERS Safety Report 7400406-2 (Version None)
Quarter: 2011Q1

REPORT INFORMATION
  Report Type: 
  Country: None (occurrence: None)
  Receive Date: 20110330
  Receipt Date: 20110315
  Transmission Date: 20110831
  Serious: Yes (Hospitalization)
  Sender: FDA-Public Use
  Company Number: 2011MA002438

PATIENT

DRUGS (6)
  1. CYTOSINE [Concomitant]
  2. CYCLOSPORINE [Concomitant]
  3. ARABINOSIDE [Concomitant]
  4. DACTINOMYCIN [Concomitant]
  5. METHOTREXATE [Concomitant]
  6. HYDROCORTISONE [Suspect]
     Indication: SARCOMA
     Dosage: 90 MG/M**2; INTH
     Route: 037

REACTIONS (1)
  - MYELITIS [None]
